FAERS Safety Report 7879218-1 (Version None)
Quarter: 2011Q4

REPORT INFORMATION
  Report Type: 
  Country: None (occurrence: None)
  Receive Date: 20111101
  Receipt Date: 20111031
  Transmission Date: 20120403
  Serious: Yes (Death, Other)
  Sender: FDA-Public Use
  Company Number: DE-PFIZER INC-2011265144

PATIENT
  Age: 47 Year
  Sex: Female

DRUGS (1)
  1. CELEBREX [Suspect]
     Dosage: 100 MG, UNK
     Route: 048
     Dates: start: 20110415

REACTIONS (10)
  - MULTI-ORGAN FAILURE [None]
  - SHOCK [None]
  - ASCITES [None]
  - PLEURAL EFFUSION [None]
  - SYNCOPE [None]
  - INFECTION [None]
  - DIZZINESS [None]
  - BRAIN OEDEMA [None]
  - CYANOSIS [None]
  - LUNG DISORDER [None]
